FAERS Safety Report 8012287-7 (Version None)
Quarter: 2011Q4

REPORT INFORMATION
  Report Type: 
  Country: None (occurrence: None)
  Receive Date: 20111228
  Receipt Date: 20111219
  Transmission Date: 20120403
  Serious: Yes (Other)
  Sender: FDA-Public Use
  Company Number: CN-ASTRAZENECA-2011SE76452

PATIENT

DRUGS (5)
  1. PROPOFOL [Suspect]
     Indication: ANAESTHESIA
     Dosage: 1-2 MG/KG
     Route: 042
  2. PHENOBARBITAL SODIUM 100MG CAP [Suspect]
     Dosage: 2 MG/KG 30 MIN BEFORE SURGERY
     Route: 030
  3. KETAMINE HCL [Suspect]
     Indication: ANAESTHESIA
     Dosage: 1-2 MG/KG
     Route: 042
  4. MIDAZOLAM [Suspect]
     Route: 042
  5. ATROPINE [Suspect]
     Dosage: 0.01-0.02 MG/KG 30 MIN BEFORE SURGERY
     Route: 030

REACTIONS (2)
  - DYSKINESIA [None]
  - RESPIRATORY DEPRESSION [None]
